FAERS Safety Report 12568308 (Version 1)
Quarter: 2016Q3

REPORT INFORMATION
  Report Type: Spontaneous
  Country: AU (occurrence: AU)
  Receive Date: 20160718
  Receipt Date: 20160718
  Transmission Date: 20161109
  Serious: Yes (Other)
  Sender: FDA-Public Use
  Company Number: AU-BAUSCH-BL-2016-016792

PATIENT
  Age: 47 Year
  Sex: Female

DRUGS (16)
  1. CHLORAMPHENICOL 0.3 PERCENT [Concomitant]
     Indication: KERATITIS
     Dosage: MINIMS
     Route: 047
  2. CIPROFLOXACIN 0.3 PERCENT [Concomitant]
     Indication: KERATITIS
     Route: 047
  3. GENTAMICIN 1.5 PERCENT [Concomitant]
     Indication: KERATITIS
     Dosage: RIGHT EYE, FORTIFIED GENTAMICIN
     Route: 047
  4. PREDNISOLONE ACETATE. [Suspect]
     Active Substance: PREDNISOLONE ACETATE
     Dosage: INCREASED TO TWO HOURLY
     Route: 047
  5. TOBRAMYCIN 0.3 PERCENT [Concomitant]
     Active Substance: TOBRAMYCIN
     Indication: KERATITIS
     Dosage: RIGHT EYE 2 DAYS POST-PRESENTATION
     Route: 047
  6. ATROPINE 1 PERCENT [Concomitant]
     Indication: KERATITIS
  7. HOMATROPINE 2 PERCENT [Concomitant]
     Indication: KERATITIS
     Dosage: RIGHT EYE
     Route: 047
  8. CO-TRIMOXAZOLE 160/800 MG [Concomitant]
     Indication: KERATITIS
     Dosage: 160/800 MG
     Route: 048
  9. AMIKACIN 2.5 PERCENT [Concomitant]
     Indication: KERATITIS
     Route: 047
  10. AMIKACIN 2.5 PERCENT [Concomitant]
     Indication: KERATITIS
  11. PREDNISOLONE ACETATE. [Suspect]
     Active Substance: PREDNISOLONE ACETATE
     Route: 047
  12. IRBESARTAN. [Concomitant]
     Active Substance: IRBESARTAN
     Indication: HYPERTENSION
  13. ATROPINE 1 PERCENT [Concomitant]
     Indication: KERATITIS
     Dosage: IN RIGHT EYE (MINIMS )
     Route: 047
  14. AMIKACIN 2.5 PERCENT [Concomitant]
     Indication: KERATITIS
     Dosage: RIGHT EYE
     Route: 047
  15. PREDNISOLONE ACETATE. [Suspect]
     Active Substance: PREDNISOLONE ACETATE
     Indication: KERATITIS
     Dosage: SIX TIMES PER DAY RIGHT EYE
     Route: 047
  16. CO-TRIMOXAZOLE 160/800 MG [Concomitant]
     Indication: KERATITIS

REACTIONS (2)
  - Infection reactivation [Recovered/Resolved]
  - Self-medication [Unknown]
